FAERS Safety Report 25618811 (Version 2)
Quarter: 2025Q4

REPORT INFORMATION
  Report Type: Report from Study
  Country: CO (occurrence: CO)
  Receive Date: 20250729
  Receipt Date: 20251003
  Transmission Date: 20260118
  Serious: Yes (Hospitalization)
  Sender: NOVARTIS
  Company Number: CO-002147023-NVSC2025CO118811

PATIENT
  Sex: Male
  Weight: 80 kg

DRUGS (2)
  1. KESIMPTA [Suspect]
     Active Substance: OFATUMUMAB
     Indication: Relapsing-remitting multiple sclerosis
     Dosage: 20 MG, QMO
     Route: 058
     Dates: start: 20240131
  2. GABAPENTIN [Concomitant]
     Active Substance: GABAPENTIN
     Indication: Product used for unknown indication
     Dosage: 300 MG, Q12H
     Route: 065

REACTIONS (6)
  - Viral infection [Unknown]
  - Pyrexia [Recovered/Resolved]
  - Pain [Unknown]
  - Scar [Unknown]
  - Fatigue [Unknown]
  - Discomfort [Unknown]
